FAERS Safety Report 23148866 (Version 1)
Quarter: 2023Q4

REPORT INFORMATION
  Report Type: Spontaneous
  Country: NP (occurrence: NP)
  Receive Date: 20231106
  Receipt Date: 20231106
  Transmission Date: 20240109
  Serious: Yes (Hospitalization, Other)
  Sender: FDA-Public Use
  Company Number: NP-AMNEAL PHARMACEUTICALS-2023-AMRX-03857

PATIENT
  Age: 70 Year
  Sex: Female

DRUGS (1)
  1. WARFARIN SODIUM [Suspect]
     Active Substance: WARFARIN SODIUM
     Indication: Product used for unknown indication
     Dosage: 4MG, QD
     Route: 065

REACTIONS (7)
  - Coagulopathy [Recovering/Resolving]
  - Intestinal ischaemia [Recovering/Resolving]
  - Portal venous gas [Recovered/Resolved]
  - Pneumatosis intestinalis [Recovered/Resolved]
  - Ascites [Recovering/Resolving]
  - Metabolic acidosis [Recovering/Resolving]
  - Melaena [Recovering/Resolving]
